FAERS Safety Report 9213011 (Version 1)
Quarter: 2013Q2

REPORT INFORMATION
  Report Type: Spontaneous
  Country: ES (occurrence: ES)
  Receive Date: 20130405
  Receipt Date: 20130405
  Transmission Date: 20140414
  Serious: Yes (Other)
  Sender: FDA-Public Use
  Company Number: ES-ACCORD-017126

PATIENT
  Age: 23 Year
  Sex: Female

DRUGS (1)
  1. TOPIRAMATE [Suspect]
     Indication: MIGRAINE PROPHYLAXIS
     Dosage: AT BEDTIME,

REACTIONS (2)
  - Illusion [Recovered/Resolved]
  - Off label use [Unknown]
